FAERS Safety Report 8184776-6 (Version None)
Quarter: 2012Q1

REPORT INFORMATION
  Report Type: 
  Country: None (occurrence: None)
  Receive Date: 20120305
  Receipt Date: 20120305
  Transmission Date: 20120608
  Serious: Yes (Death)
  Sender: FDA-Public Use
  Company Number: None

PATIENT
  Sex: Female
  Weight: 15 kg

DRUGS (1)
  1. TRIMETHOPRIM + SULFAMETHOXAZOLE [Suspect]
     Indication: URINARY TRACT INFECTION
     Dosage: UNKNOWN
     Route: 048

REACTIONS (32)
  - VOMITING [None]
  - DIABETES INSIPIDUS [None]
  - HEPATIC FAILURE [None]
  - HISTIOCYTOSIS HAEMATOPHAGIC [None]
  - MULTI-ORGAN FAILURE [None]
  - MYOCARDITIS [None]
  - ABDOMINAL PAIN [None]
  - DRUG RASH WITH EOSINOPHILIA AND SYSTEMIC SYMPTOMS [None]
  - CYTOKINE STORM [None]
  - PETECHIAE [None]
  - TACHYPNOEA [None]
  - NEUTROPENIA [None]
  - BRAIN HERNIATION [None]
  - BRAIN OEDEMA [None]
  - CEREBRAL HAEMOSIDERIN DEPOSITION [None]
  - PYREXIA [None]
  - CARDIAC FAILURE [None]
  - MYALGIA [None]
  - STATUS EPILEPTICUS [None]
  - INTRACRANIAL PRESSURE INCREASED [None]
  - IRRITABILITY [None]
  - MENTAL STATUS CHANGES [None]
  - PRURITUS GENITAL [None]
  - PNEUMONITIS [None]
  - VENTRICULAR TACHYCARDIA [None]
  - VENTRICULAR FIBRILLATION [None]
  - TACHYCARDIA [None]
  - SOMNOLENCE [None]
  - APNOEA [None]
  - RETINAL HAEMORRHAGE [None]
  - ENCEPHALOPATHY [None]
  - HEPATITIS [None]
